FAERS Safety Report 8460110-9 (Version None)
Quarter: 2012Q2

REPORT INFORMATION
  Report Type: 
  Country: None (occurrence: None)
  Receive Date: 20120622
  Receipt Date: 20120613
  Transmission Date: 20120825
  Serious: Yes (Other)
  Sender: FDA-Public Use
  Company Number: US-ASTRAZENECA-2010SE25150

PATIENT
  Age: 53 Year
  Sex: Female
  Weight: 68 kg

DRUGS (33)
  1. SEROQUEL [Suspect]
     Indication: POST-TRAUMATIC STRESS DISORDER
     Route: 048
     Dates: start: 20050101
  2. SEROQUEL [Suspect]
     Dosage: 300-500 MG AT NIGHT
     Route: 048
  3. SEROQUEL [Suspect]
     Dosage: 1 TABLET DAILY, 2-5 TABLETS AT BED TIME
     Route: 048
  4. PREVACID [Suspect]
  5. SEROQUEL [Suspect]
     Indication: BIPOLAR I DISORDER
     Route: 048
     Dates: start: 20050101
  6. SEROQUEL [Suspect]
     Route: 048
     Dates: start: 20050101
  7. SEROQUEL [Suspect]
     Dosage: 300-500 MG AT NIGHT
     Route: 048
  8. SEROQUEL [Suspect]
     Route: 048
     Dates: start: 20050101
  9. SEROQUEL [Suspect]
     Dosage: 1 TABLET DAILY, 3-5 TABLETS AT BED TIME
     Route: 048
  10. DEPAKOTE ER [Concomitant]
     Indication: AFFECTIVE DISORDER
     Dosage: 500 MG DIALY WITH TID FREQUENCY
     Route: 048
  11. LOTREL [Concomitant]
     Indication: BLOOD PRESSURE
     Dosage: 10-20 DAILY
  12. SEROQUEL [Suspect]
     Dosage: 1 TABLET DAILY, 3-5 TABLETS AT BED TIME
     Route: 048
  13. HYDROCHLOROTHIAZIDE [Concomitant]
     Indication: BLOOD PRESSURE
  14. SEROQUEL [Suspect]
     Indication: BIPOLAR DISORDER
     Route: 048
     Dates: start: 20050101
  15. SEROQUEL [Suspect]
     Dosage: 300-500 MG AT NIGHT
     Route: 048
  16. SEROQUEL [Suspect]
     Route: 048
     Dates: start: 20050101
  17. SEROQUEL [Suspect]
     Route: 048
     Dates: start: 20050101
  18. SEROQUEL [Suspect]
     Route: 048
  19. LAMICTAL [Concomitant]
  20. SEROQUEL [Suspect]
     Route: 048
  21. SEROQUEL [Suspect]
     Route: 048
  22. RISPERDAL [Concomitant]
  23. SEROQUEL [Suspect]
     Route: 048
     Dates: start: 20050101
  24. SEROQUEL [Suspect]
     Dosage: 1 TABLET DAILY, 2-5 TABLETS AT BED TIME
     Route: 048
  25. SEROQUEL [Suspect]
     Dosage: 1 TABLET DAILY, 2-5 TABLETS AT BED TIME
     Route: 048
  26. CALCIUM CARBONATE [Concomitant]
  27. VITAMIN D [Concomitant]
     Dosage: 5000 U
  28. SEROQUEL [Suspect]
     Dosage: 1 TABLET DAILY, 3-5 TABLETS AT BED TIME
     Route: 048
  29. ZONISAMIDE [Concomitant]
     Indication: AFFECTIVE DISORDER
     Route: 048
  30. LOTREL [Concomitant]
     Dosage: 5/20 MG, BID
  31. SEROQUEL [Suspect]
     Route: 048
     Dates: start: 20050101
  32. XANAX [Suspect]
     Indication: ANXIETY
     Route: 048
  33. ZONISAMIDE [Concomitant]

REACTIONS (14)
  - AMNESIA [None]
  - TOOTH ABSCESS [None]
  - SEDATION [None]
  - BIPOLAR DISORDER [None]
  - HALLUCINATION [None]
  - VITAMIN D DECREASED [None]
  - DRUG DOSE OMISSION [None]
  - HYPERTENSION [None]
  - ANXIETY [None]
  - CONFUSIONAL STATE [None]
  - THERAPEUTIC RESPONSE UNEXPECTED [None]
  - MANIA [None]
  - DYSPEPSIA [None]
  - WEIGHT INCREASED [None]
